FAERS Safety Report 7746070-4 (Version None)
Quarter: 2011Q3

REPORT INFORMATION
  Report Type: 
  Country: None (occurrence: None)
  Receive Date: 20110913
  Receipt Date: 20110906
  Transmission Date: 20111222
  Serious: Yes (Death, Life-Threatening, Hospitalization)
  Sender: FDA-Public Use
  Company Number: CH-SANOFI-AVENTIS-2011SA048533

PATIENT
  Sex: Male

DRUGS (7)
  1. JEVTANA KIT [Suspect]
     Route: 042
     Dates: start: 20110811, end: 20110811
  2. ARANESP [Concomitant]
     Indication: PREMEDICATION
     Dates: start: 20110811
  3. JEVTANA KIT [Suspect]
     Route: 042
     Dates: start: 20110715, end: 20110715
  4. PREDNISONE [Concomitant]
     Indication: PROSTATE CANCER
     Route: 048
  5. NEULASTA [Concomitant]
     Dates: start: 20110716
  6. NEULASTA [Concomitant]
     Dates: start: 20110812
  7. JEVTANA KIT [Suspect]
     Route: 042
     Dates: start: 20110624, end: 20110624

REACTIONS (8)
  - MULTI-ORGAN FAILURE [None]
  - LOSS OF CONSCIOUSNESS [None]
  - HYPOTENSION [None]
  - ESCHERICHIA SEPSIS [None]
  - AGRANULOCYTOSIS [None]
  - ANAEMIA [None]
  - COMA [None]
  - THROMBOCYTOPENIA [None]
